FAERS Safety Report 11063079 (Version 4)
Quarter: 2015Q3

REPORT INFORMATION
  Report Type: Spontaneous
  Country: US (occurrence: US)
  Receive Date: 20150424
  Receipt Date: 20150921
  Transmission Date: 20151125
  Serious: Yes (Life-Threatening, Hospitalization, Other)
  Sender: FDA-Public Use
  Company Number: US-BAYER-2015-138194

PATIENT
  Age: 29 Year
  Sex: Female
  Weight: 58.5 kg

DRUGS (4)
  1. ZOLOFT [Concomitant]
     Active Substance: SERTRALINE HYDROCHLORIDE
     Dosage: 50 MG, DAILY
     Dates: start: 20130718
  2. MOTRIN [Concomitant]
     Active Substance: IBUPROFEN
     Indication: PAIN
     Dosage: 600 MG, 1 TABLET THREE TIMES A DAY PRN FOR 5 DAYS
  3. MYCOSTATIN [Concomitant]
     Active Substance: NYSTATIN
     Dosage: 100,000 UNIT/GRAM TOPICAL OINTMENT (TO APPLY TWO TIMES A DAY)
     Route: 061
  4. MIRENA [Suspect]
     Active Substance: LEVONORGESTREL
     Indication: CONTRACEPTION
     Dosage: 20 MCG/24HR, CONT
     Route: 015
     Dates: start: 20071026, end: 20130718

REACTIONS (10)
  - Pregnancy with contraceptive device [None]
  - Drug ineffective [None]
  - Device issue [None]
  - General physical health deterioration [None]
  - Injury [None]
  - Abdominal pain [None]
  - Infection [None]
  - Pain [None]
  - Device use error [None]
  - Uterine perforation [None]

NARRATIVE: CASE EVENT DATE: 200810
